FAERS Safety Report 14937570 (Version 1)
Quarter: 2018Q2

REPORT INFORMATION
  Report Type: Spontaneous
  Country: GB (occurrence: GB)
  Receive Date: 20180525
  Receipt Date: 20180525
  Transmission Date: 20180711
  Serious: Yes (Other)
  Sender: FDA-Public Use
  Company Number: GB-MICRO LABS LIMITED-BB2018-00909

PATIENT
  Sex: Male

DRUGS (3)
  1. LOSARTAN. [Suspect]
     Active Substance: LOSARTAN
     Dosage: GIVEN THE MEDICATION FOR 5-6 WEEKS
  2. RISPERDAL CONSTA [Suspect]
     Active Substance: RISPERIDONE
     Indication: PSYCHOTIC DISORDER
     Dosage: GIVEN THE MEDICATION FOR 5-6 WEEKS
  3. CANDESARTAN. [Suspect]
     Active Substance: CANDESARTAN
     Dosage: GIVEN THE MEDICATION FOR 5-6 WEEKS

REACTIONS (4)
  - Psychotic disorder [Unknown]
  - Hallucination, auditory [Unknown]
  - Intrusive thoughts [Unknown]
  - Inhibitory drug interaction [Unknown]
